FAERS Safety Report 6521865-3 (Version None)
Quarter: 2009Q4

REPORT INFORMATION
  Report Type: 
  Country: None (occurrence: None)
  Receive Date: 20091214
  Receipt Date: 20090728
  Transmission Date: 20100525
  Serious: Yes (Other)
  Sender: FDA-Public Use
  Company Number: 646944

PATIENT
  Age: 68 Year
  Sex: Female

DRUGS (2)
  1. PEGASYS [Suspect]
     Indication: HEPATITIS C
     Dosage: 180 UG 1 PER WEEK SUBCUTANEOUS
     Route: 058
     Dates: start: 20090420, end: 20090518
  2. RIBAVIRIN [Suspect]
     Indication: HEPATITIS C
     Dates: start: 20090420, end: 20090518

REACTIONS (2)
  - ANAEMIA [None]
  - HAEMOGLOBIN DECREASED [None]
